FAERS Safety Report 16465168 (Version 1)
Quarter: 2019Q2

REPORT INFORMATION
  Report Type: Spontaneous
  Country: DE (occurrence: DE)
  Receive Date: 20190621
  Receipt Date: 20190621
  Transmission Date: 20190711
  Serious: Yes (Other)
  Sender: FDA-Public Use
  Company Number: DE-009507513-1903DEU012838

PATIENT
  Age: 79 Year
  Sex: Male
  Weight: 75 kg

DRUGS (1)
  1. KEYTRUDA [Suspect]
     Active Substance: PEMBROLIZUMAB
     Indication: BRONCHIAL CARCINOMA
     Dosage: 200 MILLIGRAM
     Dates: start: 20190109, end: 20190109

REACTIONS (7)
  - Malignant neoplasm progression [Unknown]
  - Immune-mediated adverse reaction [Unknown]
  - Rash [Recovering/Resolving]
  - Product use in unapproved indication [Unknown]
  - Erythema [Unknown]
  - Dyspnoea [Recovering/Resolving]
  - Fatigue [Unknown]

NARRATIVE: CASE EVENT DATE: 2019
